FAERS Safety Report 6112404-X (Version None)
Quarter: 2009Q1

REPORT INFORMATION
  Report Type: 
  Country: None (occurrence: None)
  Receive Date: 20090312
  Receipt Date: 20090217
  Transmission Date: 20090719
  Serious: Yes (Hospitalization)
  Sender: FDA-Public Use
  Company Number: FR-BAXTER-2009BH002645

PATIENT
  Age: 18 Month
  Sex: Male
  Weight: 13 kg

DRUGS (5)
  1. ADVATE [Suspect]
     Indication: FACTOR VIII DEFICIENCY
     Route: 042
     Dates: start: 20090123, end: 20090123
  2. ADVATE [Suspect]
     Route: 042
     Dates: start: 20090123, end: 20090123
  3. ADVATE [Suspect]
     Indication: FACTOR VIII DEFICIENCY
     Route: 042
     Dates: start: 20090123, end: 20090123
  4. POLARAMINE [Concomitant]
     Indication: PREMEDICATION
     Dates: start: 20090122
  5. METHYLPREDNISOLONE 4MG TAB [Concomitant]
     Indication: PREMEDICATION
     Dates: start: 20090122

REACTIONS (1)
  - URTICARIA [None]
